FAERS Safety Report 4523899-7 (Version None)
Quarter: 2004Q4

REPORT INFORMATION
  Report Type: 
  Country: None (occurrence: None)
  Receive Date: 20041210
  Receipt Date: 20041202
  Transmission Date: 20050328
  Serious: Yes (Hospitalization)
  Sender: FDA-Public Use
  Company Number: PHEH2004US12952

PATIENT
  Age: 78 Year
  Sex: Female
  Weight: 79 kg

DRUGS (3)
  1. DIOVAN [Suspect]
     Dosage: 80 MG, QD
     Dates: start: 20040101, end: 20041019
  2. COUMADIN [Concomitant]
     Dates: start: 20030701
  3. TOPROL-XL [Concomitant]
     Dates: start: 20041007

REACTIONS (9)
  - BACK PAIN [None]
  - CARDIAC FAILURE CONGESTIVE [None]
  - CARDIAC PACEMAKER INSERTION [None]
  - COUGH [None]
  - DYSPNOEA [None]
  - LUNG INJURY [None]
  - OEDEMA PERIPHERAL [None]
  - PULMONARY OEDEMA [None]
  - RHINORRHOEA [None]
